FAERS Safety Report 9540828 (Version 1)
Quarter: 2013Q3

REPORT INFORMATION
  Report Type: Report from Study
  Country: US (occurrence: US)
  Receive Date: 20130920
  Receipt Date: 20130920
  Transmission Date: 20140515
  Serious: Yes (Death)
  Sender: FDA-Public Use
  Company Number: PHEH2013US019691

PATIENT
  Age: 83 Year
  Sex: Female

DRUGS (1)
  1. EXJADE [Suspect]
     Indication: ILL-DEFINED DISORDER
     Dosage: 250 MG, TID
     Route: 048
     Dates: start: 20121108

REACTIONS (1)
  - Death [Fatal]
